FAERS Safety Report 12257682 (Version 3)
Quarter: 2016Q3

REPORT INFORMATION
  Report Type: Spontaneous
  Country: US (occurrence: US)
  Receive Date: 20160412
  Receipt Date: 20160829
  Transmission Date: 20161109
  Serious: No
  Sender: FDA-Public Use
  Company Number: US-PFIZER INC-2016176783

PATIENT
  Age: 57 Year
  Sex: Female

DRUGS (17)
  1. BUMETANIDE. [Concomitant]
     Active Substance: BUMETANIDE
     Dosage: 1 MG, 2X/DAY
     Route: 048
  2. COREG [Concomitant]
     Active Substance: CARVEDILOL
     Dosage: 6.25 MG, 2X/DAY
     Route: 048
  3. LATUDA [Concomitant]
     Active Substance: LURASIDONE HYDROCHLORIDE
     Indication: HALLUCINATION
  4. PAROXETINE HCL [Concomitant]
     Active Substance: PAROXETINE HYDROCHLORIDE
     Dosage: 40 MG, 1X/DAY
     Route: 048
  5. REVATIO [Suspect]
     Active Substance: SILDENAFIL CITRATE
     Indication: LUNG DISORDER
     Dosage: 20 MG, 3X/DAY
     Route: 048
     Dates: start: 20151115
  6. TRAMADOL. [Concomitant]
     Active Substance: TRAMADOL
     Indication: PAIN IN EXTREMITY
     Dosage: UNK UNK, 2X/DAY (50 MG TABLET 1-2 TAB BID)
  7. LATUDA [Concomitant]
     Active Substance: LURASIDONE HYDROCHLORIDE
     Indication: SEDATION
     Dosage: 20 MG, 2X/DAY
     Route: 048
  8. BREO ELLIPTA [Concomitant]
     Active Substance: FLUTICASONE FUROATE\VILANTEROL TRIFENATATE
     Dosage: UNK UNK, 1X/DAY (100-25 MCG/INH AEROSOL POWDER BREATH ACTIVATED ONE INHALATION)
  9. STIOLTO RESPIMAT [Concomitant]
     Active Substance: OLODATEROL HYDROCHLORIDE\TIOTROPIUM BROMIDE MONOHYDRATE
     Dosage: UNK (2.5-2.5 MCG/ACT AEROSOL SOLUTION)
  10. MODAFINIL. [Concomitant]
     Active Substance: MODAFINIL
     Indication: SLEEP DISORDER
     Dosage: UNK
  11. TRAMADOL. [Concomitant]
     Active Substance: TRAMADOL
     Indication: PAIN
  12. SILVADENE [Concomitant]
     Active Substance: SILVER SULFADIAZINE
     Dosage: UNK, 2X/DAY (APPLY TO AFFECTED REGION)
  13. PRAVASTATIN SODIUM. [Concomitant]
     Active Substance: PRAVASTATIN SODIUM
     Dosage: 40 MG, 1X/DAY (AT NIGHT TIME)
     Route: 048
  14. REVATIO [Suspect]
     Active Substance: SILDENAFIL CITRATE
     Indication: PULMONARY HYPERTENSION
  15. LANTUS [Concomitant]
     Active Substance: INSULIN GLARGINE
     Indication: BLOOD GLUCOSE ABNORMAL
     Dosage: UNK (30 UNITS IN THE PM AND 60 IN THE AM)
  16. AMMONIUM LACTATE. [Concomitant]
     Active Substance: AMMONIUM LACTATE
     Dosage: UNK, 1X/DAY (12 % CREAM APPLY TO LEGS)
  17. RANITIDINE HCL [Concomitant]
     Active Substance: RANITIDINE HYDROCHLORIDE
     Dosage: 300 MG, 1X/DAY
     Route: 048

REACTIONS (1)
  - Memory impairment [Recovered/Resolved]

NARRATIVE: CASE EVENT DATE: 201511
